FAERS Safety Report 22906320 (Version 11)
Quarter: 2024Q3

REPORT INFORMATION
  Report Type: Report from Study
  Country: US (occurrence: US)
  Receive Date: 20230905
  Receipt Date: 20240904
  Transmission Date: 20241017
  Serious: Yes (Death, Hospitalization, Other)
  Sender: INSMED
  Company Number: US-INSMED, INC.-2023-03271-US

PATIENT
  Age: 21 Year
  Sex: Male

DRUGS (4)
  1. ARIKAYCE [Suspect]
     Active Substance: AMIKACIN
     Indication: Mycobacterium avium complex infection
     Dosage: 590 MILLIGRAM, QD
     Route: 055
     Dates: end: 2023
  2. ARIKAYCE [Suspect]
     Active Substance: AMIKACIN
     Dosage: UNK, UNK
     Route: 055
     Dates: start: 2023, end: 202310
  3. ARIKAYCE [Suspect]
     Active Substance: AMIKACIN
     Dosage: 590 MILLIGRAM, QD
     Route: 055
     Dates: start: 2023, end: 20240402
  4. AMIKACIN [Concomitant]
     Active Substance: AMIKACIN
     Indication: Product used for unknown indication
     Dosage: UNK, UNK
     Route: 042
     Dates: start: 202404

REACTIONS (12)
  - Death [Fatal]
  - Hospitalisation [Unknown]
  - Cystic fibrosis [Unknown]
  - Pneumonia pseudomonal [Unknown]
  - Pneumonia pseudomonal [Unknown]
  - Forced expiratory volume decreased [Unknown]
  - Infective pulmonary exacerbation of cystic fibrosis [Unknown]
  - Infective pulmonary exacerbation of cystic fibrosis [Recovered/Resolved]
  - Pneumonia pseudomonal [Recovered/Resolved]
  - Oropharyngeal pain [Unknown]
  - Therapy interrupted [Unknown]
  - Product physical consistency issue [Unknown]

NARRATIVE: CASE EVENT DATE: 20240402
